FAERS Safety Report 22297532 (Version 1)
Quarter: 2023Q2

REPORT INFORMATION
  Report Type: Spontaneous
  Country: US (occurrence: US)
  Receive Date: 20230509
  Receipt Date: 20230509
  Transmission Date: 20230722
  Serious: Yes (Hospitalization)
  Sender: FDA-Public Use
  Company Number: US-TEVA-2023-US-2884767

PATIENT
  Age: 32 Year
  Sex: Female

DRUGS (4)
  1. METOPROLOL TARTRATE [Suspect]
     Active Substance: METOPROLOL TARTRATE
     Indication: Arrhythmia
     Dosage: 25 MILLIGRAM DAILY; 12.5MG TWICE A DAY
     Route: 048
  2. SOTALOL [Suspect]
     Active Substance: SOTALOL
     Indication: Arrhythmia
     Dosage: 160 MILLIGRAM DAILY; 80MG TWICE A DAY
     Route: 048
  3. FLECAINIDE [Suspect]
     Active Substance: FLECAINIDE
     Indication: Arrhythmia
     Dosage: 100 MILLIGRAM DAILY; 50MG TWICE A DAY
     Route: 048
  4. ASPIRIN [Suspect]
     Active Substance: ASPIRIN
     Indication: Thrombosis prophylaxis
     Dosage: 81 MG
     Route: 065

REACTIONS (4)
  - Dyspnoea [Recovered/Resolved]
  - Presyncope [Recovered/Resolved]
  - Electrocardiogram QT prolonged [Recovered/Resolved]
  - Maternal exposure during pregnancy [Unknown]
